FAERS Safety Report 10134111 (Version 2)
Quarter: 2014Q2

REPORT INFORMATION
  Report Type: Report from Study
  Country: JP (occurrence: JP)
  Receive Date: 20140428
  Receipt Date: 20140428
  Transmission Date: 20141212
  Serious: Yes (Death)
  Sender: FDA-Public Use
  Company Number: JP-TAKEDA-TCI2012A02824

PATIENT
  Age: 83 Year
  Sex: Female
  Weight: 44.8 kg

DRUGS (25)
  1. ALOGLIPTIN [Suspect]
     Indication: TYPE 2 DIABETES MELLITUS
     Dosage: 25 MG, QD
     Route: 048
     Dates: start: 20110323
  2. BASEN [Concomitant]
     Indication: TYPE 2 DIABETES MELLITUS
     Dosage: 0.9 MG, 1 DAYS
     Route: 048
     Dates: start: 20110323
  3. MICOMBI BP [Concomitant]
     Dosage: 1 DF, 1 DAYS
     Route: 048
  4. METOLATE [Concomitant]
     Indication: RHEUMATOID ARTHRITIS
     Dosage: UNK, 1/WEEK
     Route: 048
     Dates: end: 20110720
  5. METOLATE [Concomitant]
     Dosage: UNK, 1/WEEK
     Route: 048
     Dates: start: 20110727, end: 20111027
  6. METOLATE [Concomitant]
     Dosage: UNK, 1/WEEK
     Route: 048
     Dates: start: 20111102, end: 20120829
  7. METOLATE [Concomitant]
     Dosage: UNK, 1/WEEK
     Route: 048
     Dates: start: 20120905
  8. FOLIAMIN [Concomitant]
     Indication: VITAMIN SUPPLEMENTATION
     Dosage: UNK, 1/WEEK
     Route: 048
     Dates: end: 20110430
  9. FOLIAMIN [Concomitant]
     Dosage: UNK, 1/WEEK
     Route: 048
     Dates: start: 20110501, end: 20110930
  10. FOLIAMIN [Concomitant]
     Dosage: UNK, 1/WEEK
     Route: 048
     Dates: start: 20111006
  11. LIVALO [Concomitant]
     Dosage: 1 MG, 1 DAYS
     Route: 048
  12. CONIEL [Concomitant]
     Dosage: 4 MG, 1 DAYS
     Route: 048
  13. PROMAC D [Concomitant]
     Indication: DYSGEUSIA
     Dosage: 150 MG, 1 DAYS
     Route: 048
  14. FOSAMAC [Concomitant]
     Dosage: 35 MG, 1/WEEK
     Route: 048
  15. KINEDAK [Concomitant]
     Dosage: 150 MG, 1 DAYS, BEFORE START OF NESINA
     Route: 048
     Dates: end: 20110430
  16. METHYCOBAL [Concomitant]
     Dosage: 1.5 MG, 1 DAYS, BEFORE START OF NESINA
     Route: 048
     Dates: end: 20110430
  17. MYSLEE [Concomitant]
     Dosage: 5 MG, 1 DAYS, BEFORE START OF NESINA
     Route: 048
  18. PREDNISOLONE [Concomitant]
     Dosage: 3 MG, 1 DAYS, BEFORE START OF NESINA
     Route: 048
  19. TSUMURA SHAKUYAKUKANZOUTOU [Concomitant]
     Dosage: 5 G, 1 DAYS
     Route: 048
     Dates: start: 20110430
  20. LOXONIN TAPE [Concomitant]
     Dosage: UNK, PRN, BEFORE START OF NESINA
     Route: 062
  21. PROGRAF [Concomitant]
     Dosage: 1 MG, 1 DAYS
     Route: 048
     Dates: start: 20130106
  22. NORSPAN                            /00444001/ [Concomitant]
     Dosage: 5 MG, 1/WEEK
     Route: 062
     Dates: start: 20120326, end: 20120605
  23. NORSPAN                            /00444001/ [Concomitant]
     Dosage: 10 MG, 1/WEEK
     Route: 062
     Dates: start: 20120606, end: 20121108
  24. NORSPAN                            /00444001/ [Concomitant]
     Dosage: 5 MG, 1/WEEK
     Route: 062
     Dates: start: 20121109, end: 20130409
  25. NAUZELIN [Concomitant]
     Dosage: 30 MG, 1 DAYS
     Route: 048
     Dates: start: 20120326, end: 20120401

REACTIONS (2)
  - Death [Fatal]
  - Rheumatoid arthritis [Recovering/Resolving]
